FAERS Safety Report 7298587-7 (Version None)
Quarter: 2010Q4

REPORT INFORMATION
  Report Type: 
  Country: None (occurrence: None)
  Receive Date: 20101029
  Receipt Date: 20090930
  Transmission Date: 20110411
  Serious: Yes (Life-Threatening)
  Sender: FDA-Public Use
  Company Number: 2009-3929

PATIENT
  Age: 3 Year
  Sex: Male
  Weight: 9.54 kg

DRUGS (2)
  1. INCRELEX [Suspect]
     Indication: GROWTH HORMONE DEFICIENCY
     Dosage: 10 IU (5 IU, 2 IN 1 D),SUBCUTANEOUS
     Route: 058
     Dates: start: 20081104
  2. VALPROATE (VALPROATE BISMUTH) [Concomitant]

REACTIONS (2)
  - HYPOGLYCAEMIA [None]
  - LOSS OF CONSCIOUSNESS [None]
